FAERS Safety Report 5160852-7 (Version None)
Quarter: 2006Q4

REPORT INFORMATION
  Report Type: 
  Country: None (occurrence: None)
  Receive Date: 20061130
  Receipt Date: 20061120
  Transmission Date: 20070319
  Serious: Yes (Hospitalization)
  Sender: FDA-Public Use
  Company Number: FR-JNJFOC-20061104615

PATIENT
  Age: 39 Year
  Sex: Male

DRUGS (3)
  1. REMICADE [Suspect]
     Indication: ANKYLOSING SPONDYLITIS
     Route: 042
  2. INIPOMP [Suspect]
     Indication: PROPHYLAXIS
     Route: 048
  3. BUTAZOLIDINE [Suspect]
     Indication: ARTHRALGIA
     Route: 048

REACTIONS (2)
  - DISSEMINATED TUBERCULOSIS [None]
  - TUBERCULOMA OF CENTRAL NERVOUS SYSTEM [None]
